FAERS Safety Report 10022577 (Version 1)
Quarter: 2014Q1

REPORT INFORMATION
  Report Type: Spontaneous
  Country: GB (occurrence: GB)
  Receive Date: 20140319
  Receipt Date: 20140319
  Transmission Date: 20141002
  Serious: Yes (Other)
  Sender: FDA-Public Use
  Company Number: GB-TEVA-467452ISR

PATIENT
  Age: 72 Year
  Sex: Male
  Weight: 57.18 kg

DRUGS (5)
  1. PERINDOPRIL [Suspect]
     Dates: start: 20131022
  2. ASPIRIN [Concomitant]
     Dates: start: 20131125
  3. BISOPROLOL [Concomitant]
     Dates: start: 20131111, end: 20140106
  4. DUOTRAV [Concomitant]
     Dates: start: 20131125
  5. LANSOPRAZOLE [Concomitant]
     Dates: start: 20131002

REACTIONS (1)
  - Malaise [Recovered/Resolved]
